FAERS Safety Report 4583904-9 (Version None)
Quarter: 2005Q1

REPORT INFORMATION
  Report Type: 
  Country: None (occurrence: None)
  Receive Date: 20050125
  Receipt Date: 20041022
  Transmission Date: 20050727
  Serious: No
  Sender: FDA-Public Use
  Company Number: USA041081007

PATIENT
  Age: 64 Year
  Sex: Female
  Weight: 59 kg

DRUGS (6)
  1. FORTEO [Suspect]
     Indication: OSTEOPOROSIS
     Dosage: 20 UG DAY
     Dates: start: 20041010, end: 20041020
  2. ENBREL [Concomitant]
  3. PREDNISONE [Concomitant]
  4. PLAQUENIL [Concomitant]
  5. TOLECTIN [Concomitant]
  6. MORPHINE [Concomitant]

REACTIONS (6)
  - ANOREXIA [None]
  - ANXIETY [None]
  - ASTHENIA [None]
  - DIZZINESS [None]
  - FATIGUE [None]
  - MUSCLE SPASMS [None]
